FAERS Safety Report 17157604 (Version 1)
Quarter: 2019Q4

REPORT INFORMATION
  Report Type: Spontaneous
  Country: US (occurrence: US)
  Receive Date: 20191122
  Receipt Date: 20191122
  Transmission Date: 20200122
  Serious: Yes (Hospitalization)
  Sender: FDA-Public Use
  Company Number: None

PATIENT
  Age: 20 Year
  Sex: Female

DRUGS (5)
  1. RITUXAN + IRON [Concomitant]
  2. OMEPRAZOLE. [Concomitant]
     Active Substance: OMEPRAZOLE
  3. STELARA [Suspect]
     Active Substance: USTEKINUMAB
     Indication: ENDOCARDITIS
     Dosage: ?          OTHER FREQUENCY:Q8WKS ;?
     Route: 058
     Dates: start: 20160225
  4. STELARA [Suspect]
     Active Substance: USTEKINUMAB
     Indication: SYSTEMIC LUPUS ERYTHEMATOSUS
     Dosage: ?          OTHER FREQUENCY:Q8WKS ;?
     Route: 058
     Dates: start: 20160225
  5. PREDNISONE. [Concomitant]
     Active Substance: PREDNISONE

REACTIONS (2)
  - Vomiting [None]
  - Dizziness [None]

NARRATIVE: CASE EVENT DATE: 20191121
